FAERS Safety Report 22889377 (Version 2)
Quarter: 2023Q4

REPORT INFORMATION
  Report Type: Spontaneous
  Country: US (occurrence: US)
  Receive Date: 20230831
  Receipt Date: 20231115
  Transmission Date: 20240110
  Serious: Yes (Other)
  Sender: FDA-Public Use
  Company Number: US-PFIZER INC-202300285627

PATIENT
  Age: 74 Year
  Sex: Female
  Weight: 69.4 kg

DRUGS (2)
  1. PAXLOVID [Suspect]
     Active Substance: NIRMATRELVIR\RITONAVIR
     Indication: COVID-19 treatment
     Dosage: [NIRMATRELVIR 300 MG]/[RITONAVIR 100 MG]
     Dates: start: 20230810, end: 20230811
  2. SIMVASTATIN [Suspect]
     Active Substance: SIMVASTATIN
     Dosage: 10 MG, DAILY

REACTIONS (2)
  - Tremor [Recovering/Resolving]
  - Blood potassium decreased [Unknown]

NARRATIVE: CASE EVENT DATE: 20230801
